FAERS Safety Report 7411448-5 (Version None)
Quarter: 2011Q2

REPORT INFORMATION
  Report Type: 
  Country: None (occurrence: None)
  Receive Date: 20110413
  Receipt Date: 20110404
  Transmission Date: 20111010
  Serious: Yes (Other)
  Sender: FDA-Public Use
  Company Number: SE-SANOFI-AVENTIS-2011SA020362

PATIENT
  Age: 38 Year
  Sex: Female

DRUGS (8)
  1. DICLOFENAC [Concomitant]
  2. PANOCOD [Concomitant]
  3. ARAVA [Suspect]
     Indication: ARTHRITIS
     Route: 048
     Dates: start: 20080211, end: 20100802
  4. SYMBICORT [Concomitant]
  5. OMEPRAZOLE [Concomitant]
  6. REMICADE [Suspect]
     Indication: ARTHRITIS
     Route: 042
     Dates: start: 20100416
  7. FOLACIN [Concomitant]
  8. CYANOCOBALAMIN [Concomitant]

REACTIONS (1)
  - HEPATITIS [None]
